FAERS Safety Report 25529656 (Version 1)
Quarter: 2025Q3

REPORT INFORMATION
  Report Type: Spontaneous
  Country: US (occurrence: None)
  Receive Date: 20250708
  Receipt Date: 20250708
  Transmission Date: 20251020
  Serious: Yes (Death)
  Sender: FDA-CTU
  Company Number: None

PATIENT
  Age: 73 Year
  Sex: Male

DRUGS (16)
  1. TECENTRIQ [Suspect]
     Active Substance: ATEZOLIZUMAB
     Indication: Hepatic cancer
     Route: 041
     Dates: start: 20250701, end: 20250701
  2. ASPIRIN [Concomitant]
     Active Substance: ASPIRIN
  3. ACETAMINOPHEN [Concomitant]
     Active Substance: ACETAMINOPHEN
  4. BISACODYL [Concomitant]
     Active Substance: BISACODYL
  5. VITRON [Concomitant]
  6. SPIRONOLACTONE [Concomitant]
     Active Substance: SPIRONOLACTONE
  7. PANTOPRAZOLE [Concomitant]
     Active Substance: PANTOPRAZOLE
  8. NIFEDIPINE [Concomitant]
     Active Substance: NIFEDIPINE
  9. OXYCODONE [Concomitant]
     Active Substance: OXYCODONE
  10. MIRALAX [Concomitant]
     Active Substance: POLYETHYLENE GLYCOL 3350
  11. MAGNESIUM [Concomitant]
     Active Substance: MAGNESIUM
  12. LANTUS [Concomitant]
     Active Substance: INSULIN GLARGINE
  13. GLIPIZIDE [Concomitant]
     Active Substance: GLIPIZIDE
  14. FUROSEMIDE [Concomitant]
     Active Substance: FUROSEMIDE
  15. FINASTERIDE [Concomitant]
     Active Substance: FINASTERIDE
  16. CARVEDILOL [Concomitant]
     Active Substance: CARVEDILOL

REACTIONS (1)
  - Death [None]

NARRATIVE: CASE EVENT DATE: 20250701
